FAERS Safety Report 24774185 (Version 2)
Quarter: 2025Q3

REPORT INFORMATION
  Report Type: Spontaneous
  Country: US (occurrence: US)
  Receive Date: 20241225
  Receipt Date: 20250809
  Transmission Date: 20251020
  Serious: Yes (Other)
  Sender: ALEXION PHARMACEUTICALS
  Company Number: US-ASTRAZENECA-202412GLO018895US

PATIENT
  Age: 68 Year
  Sex: Male

DRUGS (3)
  1. SEROQUEL [Suspect]
     Active Substance: QUETIAPINE FUMARATE
     Indication: Psychotic disorder
     Dosage: 100 MILLIGRAM, BID
     Route: 065
     Dates: start: 20240906, end: 20240906
  2. CAPLYTA [Suspect]
     Active Substance: LUMATEPERONE
     Indication: Schizophrenia
     Dosage: 42 MILLIGRAM, QD
     Dates: start: 20240627
  3. VALPROIC ACID [Concomitant]
     Active Substance: VALPROIC ACID
     Route: 065

REACTIONS (11)
  - Psychotic disorder [Not Recovered/Not Resolved]
  - Posture abnormal [Unknown]
  - Propulsive gait [Unknown]
  - Cognitive disorder [Unknown]
  - Disorientation [Unknown]
  - Coordination abnormal [Unknown]
  - Agitation [Unknown]
  - Anger [Unknown]
  - Movement disorder [Not Recovered/Not Resolved]
  - Gait disturbance [Recovering/Resolving]
  - Fall [Recovering/Resolving]

NARRATIVE: CASE EVENT DATE: 20240705
